FAERS Safety Report 8222694-5 (Version None)
Quarter: 2012Q1

REPORT INFORMATION
  Report Type: 
  Country: None (occurrence: None)
  Receive Date: 20120320
  Receipt Date: 20120308
  Transmission Date: 20120608
  Serious: Yes (Hospitalization, Other)
  Sender: FDA-Public Use
  Company Number: US-ELI_LILLY_AND_COMPANY-US201203002910

PATIENT
  Sex: Female

DRUGS (6)
  1. FORTEO [Suspect]
     Indication: OSTEOPOROSIS
     Dosage: 20 UG, QD
  2. FORTEO [Suspect]
     Dosage: 20 UG, QD
  3. RAMIPRIL [Concomitant]
  4. HYDRALAZINE HCL [Concomitant]
  5. METOPROLOL SUCCINATE [Concomitant]
  6. SINEMET [Concomitant]

REACTIONS (4)
  - ARTHROPATHY [None]
  - MOVEMENT DISORDER [None]
  - ANAESTHETIC COMPLICATION [None]
  - MEDICATION ERROR [None]
